FAERS Safety Report 9417146 (Version 1)
Quarter: 2013Q3

REPORT INFORMATION
  Report Type: Spontaneous
  Country: US (occurrence: US)
  Receive Date: 20130724
  Receipt Date: 20130724
  Transmission Date: 20140515
  Serious: Yes (Other)
  Sender: FDA-Public Use
  Company Number: US-INCYTE CORPORATION-2013IN001602

PATIENT
  Age: 74 Year
  Sex: Female

DRUGS (1)
  1. JAKAFI [Suspect]
     Dosage: 5 MG, BID
     Route: 048
     Dates: start: 20120808, end: 201209

REACTIONS (2)
  - Haemorrhage intracranial [Unknown]
  - Thrombocytosis [Unknown]
